FAERS Safety Report 8250620-1 (Version None)
Quarter: 2012Q2

REPORT INFORMATION
  Report Type: 
  Country: None (occurrence: None)
  Receive Date: 20120402
  Receipt Date: 20120323
  Transmission Date: 20120825
  Serious: Yes (Life-Threatening, Hospitalization)
  Sender: FDA-Public Use
  Company Number: FR-JNJFOC-20120210028

PATIENT
  Age: 56 Year
  Sex: Female

DRUGS (5)
  1. REMICADE [Suspect]
     Indication: CROHN'S DISEASE
     Dosage: TREATMENT FOR 2 YEARS
     Route: 042
     Dates: start: 20091101, end: 20111101
  2. METHOTREXATE [Concomitant]
     Dosage: 1 MONTH
     Dates: start: 20090316, end: 20090401
  3. IMURAN [Concomitant]
     Route: 048
     Dates: start: 20090115, end: 20090224
  4. PREDNISOLONE [Concomitant]
     Route: 048
     Dates: end: 20091101
  5. HUMIRA [Suspect]
     Indication: CROHN'S DISEASE
     Route: 058
     Dates: start: 20090401, end: 20091101

REACTIONS (1)
  - LUNG ADENOCARCINOMA [None]
